FAERS Safety Report 17163622 (Version 2)
Quarter: 2020Q4

REPORT INFORMATION
  Report Type: Spontaneous
  Country: US (occurrence: US)
  Receive Date: 20191217
  Receipt Date: 20201216
  Transmission Date: 20210113
  Serious: Yes (Other)
  Sender: FDA-Public Use
  Company Number: US-PFIZER INC-2019544523

PATIENT
  Age: 50 Year
  Sex: Female

DRUGS (5)
  1. VENTOLINE [SALBUTAMOL SULFATE] [Concomitant]
     Active Substance: ALBUTEROL SULFATE
  2. CHANTIX [Concomitant]
     Active Substance: VARENICLINE TARTRATE
  3. ALBUTEROL [SALBUTAMOL] [Concomitant]
     Active Substance: ALBUTEROL
  4. ALVESCO [Concomitant]
     Active Substance: CICLESONIDE
  5. LYRICA [Suspect]
     Active Substance: PREGABALIN
     Dosage: UNK

REACTIONS (2)
  - Upper limb fracture [Unknown]
  - Wrist fracture [Unknown]
